FAERS Safety Report 18500745 (Version 5)
Quarter: 2020Q4

REPORT INFORMATION
  Report Type: Spontaneous
  Country: BR (occurrence: BR)
  Receive Date: 20201113
  Receipt Date: 20201223
  Transmission Date: 20210114
  Serious: Yes (Hospitalization, Other)
  Sender: FDA-Public Use
  Company Number: BR-PFIZER INC-2020444591

PATIENT
  Age: 61 Year
  Sex: Female
  Weight: 63 kg

DRUGS (7)
  1. LYRICA [Suspect]
     Active Substance: PREGABALIN
     Indication: SPINAL PAIN
  2. PURAN [Concomitant]
     Active Substance: LEVOTHYROXINE SODIUM
     Dosage: UNK
  3. LYRICA [Suspect]
     Active Substance: PREGABALIN
     Indication: SPINAL COLUMN INJURY
     Dosage: 75 MG, DAILY(AT NIGHT)
     Route: 048
     Dates: start: 20200918, end: 20201113
  4. LIPIDIL [Concomitant]
     Active Substance: FENOFIBRATE
     Dosage: UNK
  5. BENICAR HCT [Concomitant]
     Active Substance: HYDROCHLOROTHIAZIDE\OLMESARTAN MEDOXOMIL
     Dosage: UNK
  6. OMEPRAZOL [Concomitant]
     Active Substance: OMEPRAZOLE
     Dosage: UNK
  7. CRESTOR [Concomitant]
     Active Substance: ROSUVASTATIN CALCIUM
     Dosage: UNK

REACTIONS (11)
  - Dizziness [Recovered/Resolved]
  - Fall [Recovered/Resolved]
  - Thirst [Unknown]
  - Vision blurred [Unknown]
  - Intentional product misuse [Unknown]
  - Dry mouth [Recovered/Resolved]
  - Asthenia [Unknown]
  - Malaise [Unknown]
  - Ligament injury [Recovered/Resolved]
  - Insomnia [Unknown]
  - Lip exfoliation [Unknown]

NARRATIVE: CASE EVENT DATE: 2020
